FAERS Safety Report 10331368 (Version 2)
Quarter: 2014Q3

REPORT INFORMATION
  Report Type: Spontaneous
  Country: AU (occurrence: AU)
  Receive Date: 20140722
  Receipt Date: 20140723
  Transmission Date: 20150326
  Serious: Yes (Hospitalization, Other)
  Sender: FDA-Public Use
  Company Number: AU-PFIZER INC-2014202892

PATIENT
  Age: 38 Year
  Sex: Female

DRUGS (25)
  1. METHOTREXATE [Suspect]
     Active Substance: METHOTREXATE
     Indication: CROHN^S DISEASE
     Dosage: UNK
     Dates: end: 2011
  2. MULTI B-FORTE [Suspect]
     Active Substance: ASCORBIC ACID\NIACINAMIDE\PYRIDOXINE HYDROCHLORIDE\RIBOFLAVIN\THIAMINE HYDROCHLORIDE
     Indication: VITAMIN SUPPLEMENTATION
  3. ADVANTAN [Suspect]
     Active Substance: CORTICOSTEROID NOS
     Indication: ECZEMA
  4. ADVANTAN [Suspect]
     Active Substance: CORTICOSTEROID NOS
     Indication: ECZEMA
  5. NAPROGESIC [Suspect]
     Active Substance: NAPROXEN SODIUM
     Indication: DYSMENORRHOEA
  6. ATIVAN [Suspect]
     Active Substance: LORAZEPAM
     Indication: ANXIETY
  7. IMURAN [Suspect]
     Active Substance: AZATHIOPRINE
     Indication: CROHN^S DISEASE
     Dosage: UNK
  8. ADVANTAN [Suspect]
     Active Substance: CORTICOSTEROID NOS
     Indication: DERMATITIS
  9. EFFEXOR XR [Suspect]
     Active Substance: VENLAFAXINE HYDROCHLORIDE
     Indication: DEPRESSION
  10. NEXIUM [Suspect]
     Active Substance: ESOMEPRAZOLE MAGNESIUM
     Indication: GASTROOESOPHAGEAL REFLUX DISEASE
  11. MAGNESIUM [Suspect]
     Active Substance: MAGNESIUM
     Indication: MINERAL SUPPLEMENTATION
  12. VITAMIN C [Suspect]
     Active Substance: ASCORBIC ACID
     Indication: VITAMIN SUPPLEMENTATION
  13. ZINC [Suspect]
     Active Substance: ZINC\ZINC CHLORIDE
     Indication: VITAMIN SUPPLEMENTATION
  14. VITAMIN D [Suspect]
     Active Substance: CHOLECALCIFEROL
     Indication: VITAMIN SUPPLEMENTATION
  15. ENDONE [Suspect]
     Active Substance: OXYCODONE HYDROCHLORIDE
     Indication: COSTOCHONDRITIS
  16. RHODIOLA ROSEA [Suspect]
     Active Substance: HERBALS
     Indication: ANXIETY
  17. SALOFALK ^AVENTIS^ [Suspect]
     Active Substance: MESALAMINE
     Indication: CROHN^S DISEASE
     Dosage: UNK
  18. DITROPAN [Suspect]
     Active Substance: OXYBUTYNIN CHLORIDE
     Indication: HYPERHIDROSIS
  19. ADVANTAN [Suspect]
     Active Substance: CORTICOSTEROID NOS
     Indication: DERMATITIS
  20. CYCLOSPORIN [Suspect]
     Active Substance: CYCLOSPORINE
     Indication: CROHN^S DISEASE
  21. CALCIUM [Suspect]
     Active Substance: CALCIUM
     Indication: MINERAL SUPPLEMENTATION
  22. FISH OIL [Suspect]
     Active Substance: FISH OIL
     Indication: SUPPLEMENTATION THERAPY
  23. CHLORELLA VULGARIS [Suspect]
     Active Substance: CHLORELLA VULGARIS
     Indication: BLOOD HEAVY METAL INCREASED
  24. RHODIOLA ROSEA [Suspect]
     Active Substance: HERBALS
     Indication: ENERGY INCREASED
  25. CANESTEN [Suspect]
     Active Substance: CLOTRIMAZOLE
     Indication: FUNGAL SKIN INFECTION

REACTIONS (16)
  - Abdominal pain [Unknown]
  - Tongue ulceration [Unknown]
  - Mood altered [Unknown]
  - Vomiting [Unknown]
  - Eye inflammation [Recovering/Resolving]
  - Hypersensitivity [Unknown]
  - Immunosuppression [Unknown]
  - Myalgia [Unknown]
  - Weight increased [Unknown]
  - Costochondritis [Unknown]
  - Blindness transient [Unknown]
  - Hand-foot-and-mouth disease [Unknown]
  - Nausea [Unknown]
  - Mouth ulceration [Unknown]
  - Crohn^s disease [Unknown]
  - Arthralgia [Unknown]

NARRATIVE: CASE EVENT DATE: 2001
